FAERS Safety Report 16883479 (Version 1)
Quarter: 2019Q4

REPORT INFORMATION
  Report Type: Report from Study
  Country: US (occurrence: US)
  Receive Date: 20191004
  Receipt Date: 20191004
  Transmission Date: 20200122
  Serious: Yes (Death, Other)
  Sender: FDA-Public Use
  Company Number: US-ROCHE-2428714

PATIENT
  Age: 75 Year
  Sex: Female
  Weight: 75 kg

DRUGS (1)
  1. ATEZOLIZUMAB. [Suspect]
     Active Substance: ATEZOLIZUMAB
     Indication: CHOLANGIOCARCINOMA
     Route: 042
     Dates: start: 20180814

REACTIONS (8)
  - Confusional state [Unknown]
  - Vomiting [Unknown]
  - Ascites [Unknown]
  - Abdominal pain [Unknown]
  - Dehydration [Unknown]
  - Disease progression [Fatal]
  - Nausea [Unknown]
  - Constipation [Unknown]
